FAERS Safety Report 4658622-9 (Version None)
Quarter: 2005Q2

REPORT INFORMATION
  Report Type: 
  Country: None (occurrence: None)
  Receive Date: 20050509
  Receipt Date: 20050421
  Transmission Date: 20051028
  Serious: Yes (Other)
  Sender: FDA-Public Use
  Company Number: DSA_60487_2005

PATIENT
  Sex: Female

DRUGS (1)
  1. MIGRANAL [Suspect]
     Indication: MIGRAINE
     Dosage: 2 DF QDAY IN
     Dates: start: 20050414, end: 20050420

REACTIONS (2)
  - INCORRECT DRUG ADMINISTRATION DURATION [None]
  - MIGRAINE [None]
